FAERS Safety Report 6458440-5 (Version None)
Quarter: 2009Q4

REPORT INFORMATION
  Report Type: 
  Country: None (occurrence: None)
  Receive Date: 20091126
  Receipt Date: 20091119
  Transmission Date: 20100525
  Serious: Yes (Other)
  Sender: FDA-Public Use
  Company Number: US-ASTRAZENECA-2006UW26651

PATIENT
  Age: 36 Year
  Sex: Female
  Weight: 81.6 kg

DRUGS (8)
  1. SEROQUEL [Suspect]
     Route: 048
     Dates: start: 19970101
  2. SEROQUEL [Suspect]
     Dosage: 100-300 MG
     Route: 048
     Dates: start: 19990121
  3. EFFEXOR [Concomitant]
  4. BUSPAR [Concomitant]
  5. VALIUM [Concomitant]
     Route: 048
     Dates: start: 20011004
  6. CLONIDINE HCL [Concomitant]
     Dosage: 0.1-2 MG
     Route: 048
     Dates: start: 20020216
  7. ZOMIG [Concomitant]
     Route: 048
     Dates: start: 20011125
  8. NEXIUM [Concomitant]
     Route: 048
     Dates: start: 20021010

REACTIONS (10)
  - DIABETES MELLITUS [None]
  - DIABETES MELLITUS INADEQUATE CONTROL [None]
  - DIABETIC KETOACIDOSIS [None]
  - DIABETIC NEUROPATHY [None]
  - GLUCOSE TOLERANCE IMPAIRED [None]
  - HYPERGLYCAEMIA [None]
  - IMPAIRED GASTRIC EMPTYING [None]
  - METABOLIC SYNDROME [None]
  - TYPE 1 DIABETES MELLITUS [None]
  - TYPE 2 DIABETES MELLITUS [None]
